FAERS Safety Report 7940817-X (Version None)
Quarter: 2011Q4

REPORT INFORMATION
  Report Type: 
  Country: None (occurrence: None)
  Receive Date: 20111128
  Receipt Date: 20111124
  Transmission Date: 20120403
  Serious: Yes (Other)
  Sender: FDA-Public Use
  Company Number: GB-PFIZER INC-2011288157

PATIENT
  Age: 43 Year
  Sex: Male

DRUGS (1)
  1. VARENICLINE TARTRATE [Suspect]
     Dosage: UNK
     Dates: start: 20110831, end: 20110907

REACTIONS (3)
  - THINKING ABNORMAL [None]
  - DEPRESSED MOOD [None]
  - EAR CONGESTION [None]
